FAERS Safety Report 14376260 (Version 2)
Quarter: 2018Q1

REPORT INFORMATION
  Report Type: Report from Study
  Country: IT (occurrence: IT)
  Receive Date: 20180111
  Receipt Date: 20180115
  Transmission Date: 20180509
  Serious: Yes (Death)
  Sender: FDA-Public Use
  Company Number: IT-JNJFOC-20180103910

PATIENT
  Sex: Male
  Weight: 79 kg

DRUGS (9)
  1. DELTACORTENE [Concomitant]
     Active Substance: PREDNISONE
     Dosage: 25 MG 1/2 TABLET PER DAY
     Route: 065
  2. PARACETAMOL [Concomitant]
     Active Substance: ACETAMINOPHEN
     Route: 065
  3. VASORETIC [Concomitant]
     Active Substance: ENALAPRIL MALEATE\HYDROCHLOROTHIAZIDE
     Indication: HYPERTENSION
     Dosage: 20 MG/12.5 MG
     Route: 048
     Dates: start: 2000
  4. LASIX [Concomitant]
     Active Substance: FUROSEMIDE
     Indication: HYPERTENSION
     Dosage: 25 (UNITS NOT SPECIFIED)
     Route: 048
     Dates: start: 2000
  5. LYRICA [Concomitant]
     Active Substance: PREGABALIN
     Dosage: 75 MG (UPTO TWICE PER DAY)
     Route: 065
  6. TRABECTEDIN [Suspect]
     Active Substance: TRABECTEDIN
     Route: 042
  7. TRABECTEDIN [Suspect]
     Active Substance: TRABECTEDIN
     Indication: PLEURAL MESOTHELIOMA MALIGNANT
     Dosage: CYCLE: 1, INTENDED DOSE: 1.1 MG/M2
     Route: 042
     Dates: start: 20171218
  8. IPERTEN [Concomitant]
     Active Substance: MANIDIPINE
     Indication: HYPERTENSION
     Route: 065
  9. FENPATCH [Concomitant]
     Dosage: 25 UG +12.5 UG (UPTO 50 UG PER DAY)
     Route: 065

REACTIONS (1)
  - Cardiac arrest [Fatal]
